FAERS Safety Report 6337389-2 (Version None)
Quarter: 2009Q3

REPORT INFORMATION
  Report Type: 
  Country: None (occurrence: None)
  Receive Date: 20090902
  Receipt Date: 20090826
  Transmission Date: 20100115
  Serious: Yes (Other)
  Sender: FDA-Public Use
  Company Number: BR-JNJFOC-20090809079

PATIENT
  Age: 28 Year
  Sex: Female
  Weight: 29.48 kg

DRUGS (2)
  1. TYLEX [Suspect]
     Indication: PROCEDURAL PAIN
     Route: 065
  2. DIPYRONE [Concomitant]
     Indication: PROCEDURAL PAIN

REACTIONS (3)
  - ABDOMINAL PAIN UPPER [None]
  - PARAESTHESIA [None]
  - TREMOR [None]
